FAERS Safety Report 13233364 (Version 1)
Quarter: 2017Q1

REPORT INFORMATION
  Report Type: Spontaneous
  Country: US (occurrence: None)
  Receive Date: 20170213
  Receipt Date: 20170213
  Transmission Date: 20170428
  Serious: Yes (Other)
  Sender: FDA-Public Use
  Company Number: BB2017-00150

PATIENT
  Age: 65 Year
  Sex: Male

DRUGS (3)
  1. RRIVAROXABAN (UNKNOWN) [Suspect]
     Active Substance: RIVAROXABAN
     Indication: DEEP VEIN THROMBOSIS
  2. RRIVAROXABAN (UNKNOWN) [Suspect]
     Active Substance: RIVAROXABAN
     Indication: PULMONARY EMBOLISM
  3. LOSARTAN (UNKNOWN) [Suspect]
     Active Substance: LOSARTAN
     Indication: HYPERTENSION

REACTIONS (6)
  - Abdominal wall haematoma [None]
  - Abdominal tenderness [None]
  - Cough [None]
  - Haemoglobin decreased [None]
  - Contusion [None]
  - Penile contusion [None]
